FAERS Safety Report 6999645-4 (Version None)
Quarter: 2010Q3

REPORT INFORMATION
  Report Type: 
  Country: None (occurrence: None)
  Receive Date: 20100920
  Receipt Date: 20100715
  Transmission Date: 20110219
  Serious: No
  Sender: FDA-Public Use
  Company Number: US-ASTRAZENECA-2009SE12011

PATIENT
  Age: 61 Year
  Sex: Female
  Weight: 63.5 kg

DRUGS (6)
  1. SEROQUEL [Suspect]
     Route: 048
     Dates: start: 20020101
  2. SEROQUEL [Suspect]
     Route: 048
  3. SEROQUEL [Suspect]
     Route: 048
  4. LAMICTAL [Concomitant]
     Indication: CONVULSION
  5. REMERON [Concomitant]
     Indication: DEPRESSION
  6. KLONOPIN [Concomitant]

REACTIONS (6)
  - AKATHISIA [None]
  - HEPATIC ENZYME INCREASED [None]
  - INSOMNIA [None]
  - MALAISE [None]
  - PANIC ATTACK [None]
  - TARDIVE DYSKINESIA [None]
